FAERS Safety Report 9717568 (Version 1)
Quarter: 2013Q4

REPORT INFORMATION
  Report Type: Report from Study
  Country: US (occurrence: US)
  Receive Date: 20131127
  Receipt Date: 20131127
  Transmission Date: 20140711
  Serious: Yes (Other)
  Sender: FDA-Public Use
  Company Number: US-ABBVIE-13P-163-1172778-00

PATIENT
  Age: 61 Year
  Sex: Female
  Weight: 91.71 kg

DRUGS (14)
  1. HUMIRA [Suspect]
     Indication: RHEUMATOID ARTHRITIS
     Dates: start: 20131101
  2. KEPPRA [Concomitant]
     Indication: CONVULSION
     Dosage: 500MG TABLETS, 5 TABLETS (2500 MG) DAILY
  3. BUTRANS [Concomitant]
     Indication: PRODUCT USED FOR UNKNOWN INDICATION
  4. TIZANDINE [Concomitant]
     Indication: MUSCLE RELAXANT THERAPY
     Dosage: EVERY NIGHT AT BEDTIME
  5. METHOTREXATE [Concomitant]
     Indication: RHEUMATOID ARTHRITIS
     Dosage: 2.5MG TABLETS, 8 TABLETS 20MG EVERY WEDNESDAY
  6. PLAQUENIL [Concomitant]
     Indication: RHEUMATOID ARTHRITIS
  7. PREMARIN [Concomitant]
     Indication: HORMONE REPLACEMENT THERAPY
  8. TRAZODONE [Concomitant]
     Indication: ANXIETY
  9. SERTRALINE [Concomitant]
     Indication: ANXIETY
  10. EVOXAC [Concomitant]
     Indication: DRY MOUTH
     Dosage: 30MG DAILY
  11. EVOXAC [Concomitant]
     Indication: DRY SKIN
  12. ATORVASTATIN [Concomitant]
     Indication: BLOOD CHOLESTEROL INCREASED
     Dosage: 40MG DAILY
  13. IBUPROFEN [Concomitant]
     Indication: PAIN
     Dosage: ONE TABLET
  14. NORCO [Concomitant]
     Indication: PAIN
     Dosage: TWO

REACTIONS (2)
  - Convulsion [Recovering/Resolving]
  - Arthralgia [Unknown]
